FAERS Safety Report 6225549-0 (Version None)
Quarter: 2009Q2

REPORT INFORMATION
  Report Type: 
  Country: None (occurrence: None)
  Receive Date: 20090612
  Receipt Date: 20090422
  Transmission Date: 20091009
  Serious: No
  Sender: FDA-Public Use
  Company Number: US-ABBOTT-09P-163-0569536-00

PATIENT
  Sex: Male
  Weight: 70.824 kg

DRUGS (10)
  1. HUMIRA [Suspect]
     Indication: CROHN'S DISEASE
     Route: 058
     Dates: start: 20081204, end: 20081204
  2. HUMIRA [Suspect]
     Route: 058
     Dates: start: 20081225, end: 20081225
  3. HUMIRA [Suspect]
     Route: 058
     Dates: start: 20090108
  4. ALPRAZOL [Concomitant]
     Indication: ANXIETY
  5. PREDNISONE [Concomitant]
     Indication: CROHN'S DISEASE
     Dates: start: 20020101
  6. PIROXICAM [Concomitant]
     Indication: PAIN
  7. TYLENOL (CAPLET) [Concomitant]
     Indication: ARTHRITIS
  8. PHENERGAN EXPECTORANT W/ CODEINE [Concomitant]
     Indication: COUGH
  9. ASPIRIN [Concomitant]
     Indication: PROPHYLAXIS
  10. TRAMADOL HCL [Concomitant]
     Indication: PAIN

REACTIONS (7)
  - ASTHENIA [None]
  - COUGH [None]
  - DIARRHOEA [None]
  - INCREASED UPPER AIRWAY SECRETION [None]
  - INFLUENZA LIKE ILLNESS [None]
  - PAIN [None]
  - WHEEZING [None]
